FAERS Safety Report 17518977 (Version 1)
Quarter: 2020Q1

REPORT INFORMATION
  Report Type: Spontaneous
  Country: FR (occurrence: FR)
  Receive Date: 20200310
  Receipt Date: 20200310
  Transmission Date: 20200409
  Serious: Yes (Hospitalization, Other)
  Sender: FDA-Public Use
  Company Number: FR-AUROBINDO-AUR-APL-2020-011357

PATIENT
  Age: 17 Year
  Sex: Male

DRUGS (2)
  1. PARACETAMOL [Suspect]
     Active Substance: ACETAMINOPHEN
     Indication: PRODUCT USED FOR UNKNOWN INDICATION
     Dosage: 13 GRAM, 1 TOTAL (CF COMMENTAIRE)
     Route: 048
     Dates: start: 20190921
  2. TRAMADOL. [Suspect]
     Active Substance: TRAMADOL
     Indication: PRODUCT USED FOR UNKNOWN INDICATION
     Dosage: 1.5 GRAM, 1 TOTAL (CF COMMENTAIRE)
     Route: 048
     Dates: start: 20190921

REACTIONS (4)
  - Vomiting [Recovered/Resolved]
  - Tachycardia [Recovered/Resolved]
  - Tonic clonic movements [Recovered/Resolved]
  - Toxicity to various agents [Recovered/Resolved]

NARRATIVE: CASE EVENT DATE: 20190921
